FAERS Safety Report 7687683-8 (Version None)
Quarter: 2011Q3

REPORT INFORMATION
  Report Type: 
  Country: None (occurrence: None)
  Receive Date: 20110817
  Receipt Date: 20110809
  Transmission Date: 20111222
  Serious: Yes (Other)
  Sender: FDA-Public Use
  Company Number: RU-BAYER-2011-069698

PATIENT
  Age: 24 Year
  Sex: Female

DRUGS (4)
  1. YAZ [Suspect]
     Dosage: UNK
     Dates: start: 20110302, end: 20110620
  2. DROSPIRENONE AND ETHINYL ESTRADIOL [Suspect]
     Indication: HIRSUTISM
     Dosage: UNK
     Dates: start: 20091101, end: 20100101
  3. YAZ [Suspect]
     Indication: HIRSUTISM
     Dosage: UNK
     Dates: start: 20100301, end: 20101103
  4. FEMOSTON [Suspect]
     Indication: MENSTRUAL DISORDER
     Dosage: UNK
     Dates: start: 20110222

REACTIONS (9)
  - BREAST PAIN [None]
  - CONVULSIONS LOCAL [None]
  - LOSS OF LIBIDO [None]
  - VEIN DISORDER [None]
  - HEADACHE [None]
  - OEDEMA PERIPHERAL [None]
  - MENSTRUAL DISORDER [None]
  - EYE OEDEMA [None]
  - HYPERTRICHOSIS [None]
